FAERS Safety Report 9160424 (Version 2)
Quarter: 2013Q1

REPORT INFORMATION
  Report Type: Spontaneous
  Country: UG (occurrence: None)
  Receive Date: 20130215
  Receipt Date: 20130308
  Transmission Date: 20140127
  Serious: Yes (Disabling)
  Sender: FDA-Public Use
  Company Number: AUR-APL-2013-01314

PATIENT
  Sex: 0

DRUGS (5)
  1. LAMIVUDINE [Suspect]
  2. LOPINAVIR+RITONAVIR [Suspect]
  3. TENOFOVIR DISOPROXIL FUMARATE [Suspect]
  4. NEOROBINE [Concomitant]
  5. AMITRIPLICINE [Concomitant]

REACTIONS (3)
  - Neuropathy peripheral [None]
  - Pain in extremity [None]
  - Gait disturbance [None]
